FAERS Safety Report 9523637 (Version 1)
Quarter: 2013Q3

REPORT INFORMATION
  Report Type: Spontaneous
  Country: US (occurrence: US)
  Receive Date: 20130913
  Receipt Date: 20130913
  Transmission Date: 20140515
  Serious: Yes (Death, Hospitalization)
  Sender: FDA-Public Use
  Company Number: US-BAYER-2013-107107

PATIENT
  Age: 65 Year
  Sex: Male

DRUGS (5)
  1. CIPROFLOXACIN [Suspect]
     Indication: CELLULITIS
     Dosage: UNK
  2. TEMOZOLOMIDE [Suspect]
     Indication: GLIOBLASTOMA MULTIFORME
     Dosage: DAILY DOSE 200 MG
     Route: 048
  3. LEVETIRACETAM [Suspect]
     Indication: CONVULSION PROPHYLAXIS
     Dosage: UNK
  4. CEPHALEXIN [Suspect]
     Indication: CELLULITIS
     Dosage: UNK
  5. PIPERACILLIN SODIUM W/TAZOBACTAM [Concomitant]
     Indication: CELLULITIS

REACTIONS (2)
  - Cholestatic liver injury [Recovering/Resolving]
  - Gastrointestinal haemorrhage [Fatal]
